FAERS Safety Report 7782177-3 (Version None)
Quarter: 2011Q3

REPORT INFORMATION
  Report Type: 
  Country: None (occurrence: None)
  Receive Date: 20110927
  Receipt Date: 20110921
  Transmission Date: 20111222
  Serious: Yes (Hospitalization)
  Sender: FDA-Public Use
  Company Number: US-AMGEN-USACT2011028200

PATIENT
  Age: 62 Year
  Sex: Female
  Weight: 67.6 kg

DRUGS (14)
  1. VITAMIN D [Concomitant]
     Dosage: 1000 IU, QD
     Route: 048
     Dates: start: 20100601
  2. PRILOSEC [Concomitant]
     Dosage: 20 MG, UNK
     Route: 048
     Dates: start: 20100101
  3. LORAZEPAM [Concomitant]
     Dosage: 0.5 MG, PRN
     Route: 048
     Dates: start: 20110215
  4. TAXOTERE [Concomitant]
     Dosage: 40 MG/KG, Q2WK
     Dates: start: 20101216
  5. LOVAZA [Concomitant]
     Dosage: UNK
     Route: 048
     Dates: start: 20080101
  6. CISPLATIN [Concomitant]
     Dosage: 40 MG/KG, Q2WK
     Dates: start: 20101216
  7. CENTRUM SILVER [Concomitant]
     Dosage: UNK
     Route: 048
     Dates: start: 20000101
  8. PANITUMUMAB [Suspect]
     Indication: OESOPHAGEAL ADENOCARCINOMA
     Dosage: 6 MG/KG, Q2WK
     Dates: start: 20101216
  9. ASPIRIN [Concomitant]
     Dosage: 81 MG, UNK
     Route: 048
     Dates: start: 20050101
  10. DIPHENHYDRAMINE HCL [Concomitant]
     Dosage: UNK UNK, Q6H
     Route: 048
     Dates: start: 20110203
  11. LOVASTATIN [Concomitant]
     Dosage: 40 MG, QD
     Route: 048
     Dates: start: 20080101
  12. COLACE [Concomitant]
     Dosage: UNK UNK, BID
     Route: 048
     Dates: start: 20110329
  13. LIDOCAINE [Concomitant]
     Dosage: UNK UNK, Q6H
     Route: 048
     Dates: start: 20110203
  14. ESTRADIOL [Concomitant]
     Dosage: 0.05 MG, 2 TIMES/WK
     Dates: start: 20101015

REACTIONS (1)
  - CHYLOTHORAX [None]
